FAERS Safety Report 4351850-1 (Version None)
Quarter: 2004Q2

REPORT INFORMATION
  Report Type: 
  Country: None (occurrence: None)
  Receive Date: 20040429
  Receipt Date: 20040105
  Transmission Date: 20050107
  Serious: No
  Sender: FDA-Public Use
  Company Number: 2004-112136-NL

PATIENT
  Age: 45 Year
  Sex: Female
  Weight: 60.33 kg

DRUGS (1)
  1. NUVARING [Suspect]
     Indication: ANOVULATORY CYCLE
     Dosage: DF DAILY
     Dates: start: 20031213

REACTIONS (14)
  - ABDOMINAL PAIN UPPER [None]
  - ABNORMAL DREAMS [None]
  - ASTHENIA [None]
  - DEHYDRATION [None]
  - DIARRHOEA [None]
  - HEADACHE [None]
  - LETHARGY [None]
  - METRORRHAGIA [None]
  - MYALGIA [None]
  - NAUSEA [None]
  - SINUS DISORDER [None]
  - VAGINAL DISCHARGE [None]
  - VULVAL DISORDER [None]
  - VULVOVAGINAL DISCOMFORT [None]
